FAERS Safety Report 16067913 (Version 1)
Quarter: 2019Q1

REPORT INFORMATION
  Report Type: Spontaneous
  Country: PL (occurrence: PL)
  Receive Date: 20190313
  Receipt Date: 20190313
  Transmission Date: 20190418
  Serious: Yes (Other)
  Sender: FDA-Public Use
  Company Number: PL-MYLANLABS-2019M1023093

PATIENT
  Age: 63 Year
  Sex: Female

DRUGS (1)
  1. CAPECITABINE. [Suspect]
     Active Substance: CAPECITABINE
     Indication: BREAST CANCER
     Dosage: UNK UNK, CYCLE (CYCLICAL )
     Dates: start: 201403

REACTIONS (3)
  - Deep vein thrombosis [Unknown]
  - Peripheral artery thrombosis [Unknown]
  - Oedema peripheral [Unknown]
